FAERS Safety Report 13498847 (Version 1)
Quarter: 2017Q2

REPORT INFORMATION
  Report Type: Spontaneous
  Country: US (occurrence: US)
  Receive Date: 20170429
  Receipt Date: 20170429
  Transmission Date: 20170830
  Serious: Yes (Disabling)
  Sender: FDA-Public Use
  Company Number: None

PATIENT
  Age: 29 Year
  Sex: Female
  Weight: 59.85 kg

DRUGS (1)
  1. COPPERTONE SUNSCREEN OIL FREE SFP 50 [Suspect]
     Active Substance: AVOBENZONE\HOMOSALATE\OCTISALATE\OXYBENZONE
     Indication: PHOTOSENSITIVITY REACTION
     Route: 061
     Dates: start: 20170429, end: 20170429

REACTIONS (1)
  - Sunburn [None]

NARRATIVE: CASE EVENT DATE: 20170429
